FAERS Safety Report 5752526-6 (Version None)
Quarter: 2008Q2

REPORT INFORMATION
  Report Type: 
  Country: None (occurrence: None)
  Receive Date: 20080529
  Receipt Date: 20080521
  Transmission Date: 20081010
  Serious: Yes (Other)
  Sender: FDA-Public Use
  Company Number: PHHY2008JP08638

PATIENT
  Sex: Female
  Weight: 39 kg

DRUGS (9)
  1. SIMULECT [Suspect]
     Indication: RENAL TRANSPLANT
     Dosage: 20 MG, ONCE/SINGLE
     Route: 042
     Dates: start: 20061018, end: 20061018
  2. SIMULECT [Suspect]
     Dosage: 20 MG, ONCE/SINGLE
     Route: 017
     Dates: start: 20061022, end: 20061022
  3. CELLCEPT [Suspect]
     Indication: RENAL TRANSPLANT
     Dosage: 500 MG, UNK
     Route: 048
     Dates: start: 20060921, end: 20061018
  4. CELLCEPT [Suspect]
     Dosage: 1500 MG, UNK
     Route: 048
     Dates: start: 20061019
  5. BREDININ [Concomitant]
     Indication: RENAL TRANSPLANT
     Dosage: 100 MG, UNK
     Route: 048
     Dates: start: 20060921, end: 20061018
  6. PROGRAF [Concomitant]
     Indication: RENAL TRANSPLANT
     Dosage: 6 MG, UNK
     Route: 048
     Dates: start: 20061008
  7. PROGRAF [Concomitant]
     Dosage: 2 MG, UNK
     Route: 017
     Dates: start: 20061018, end: 20061018
  8. PREDONINE [Concomitant]
     Indication: RENAL TRANSPLANT
     Dosage: 50 MG, UNK
     Route: 048
     Dates: start: 20061019
  9. SOL-MELCORT [Concomitant]
     Dosage: 250 MG, UNK
     Route: 042
     Dates: start: 20061018, end: 20061018

REACTIONS (2)
  - HYPERTROPHIC CARDIOMYOPATHY [None]
  - VASCULAR STENOSIS [None]
